FAERS Safety Report 8814804 (Version 2)
Quarter: 2013Q2

REPORT INFORMATION
  Report Type: Spontaneous
  Country: US (occurrence: US)
  Receive Date: 20120928
  Receipt Date: 20130604
  Transmission Date: 20140414
  Serious: Yes (Other)
  Sender: FDA-Public Use
  Company Number: US-PFIZER INC-2012240263

PATIENT
  Age: 52 Year
  Sex: Female

DRUGS (2)
  1. CHANTIX [Suspect]
     Indication: SMOKING CESSATION THERAPY
     Dosage: UNK
     Dates: start: 20080730, end: 20080828
  2. CHANTIX [Suspect]
     Dosage: UNK
     Dates: start: 20090515

REACTIONS (5)
  - Suicidal ideation [Unknown]
  - Loss of consciousness [Unknown]
  - Depression [Unknown]
  - Anxiety [Unknown]
  - Abnormal dreams [Unknown]
